FAERS Safety Report 9539787 (Version 1)
Quarter: 2013Q2

REPORT INFORMATION
  Report Type: Spontaneous
  Country: US (occurrence: None)
  Receive Date: 20130507
  Receipt Date: 20130507
  Transmission Date: 20140414
  Serious: No
  Sender: FDA-Public Use
  Company Number: PHEH2013US003831

PATIENT
  Age: 40 Year
  Sex: Female
  Weight: 68 kg

DRUGS (2)
  1. AFINITOR [Suspect]
     Indication: BREAST CANCER
     Route: 048
     Dates: start: 20121207, end: 20130207
  2. AROMASIN (EXEMESTANE) [Concomitant]

REACTIONS (3)
  - Eye infection [None]
  - Eye swelling [None]
  - Ocular discomfort [None]
